FAERS Safety Report 9507864 (Version 1)
Quarter: 2013Q3

REPORT INFORMATION
  Report Type: Spontaneous
  Country: US (occurrence: None)
  Receive Date: 20130906
  Receipt Date: 20130906
  Transmission Date: 20140515
  Serious: Yes (Hospitalization, Other)
  Sender: FDA-Public Use
  Company Number: None

PATIENT
  Age: 60 Year
  Sex: Female
  Weight: 59.5 kg

DRUGS (7)
  1. ARQ761 BETA LAPACHONE [Suspect]
     Indication: NEOPLASM MALIGNANT
     Dosage: 390MG 1X/WEEK FOR 4 WK IV
     Route: 042
     Dates: start: 20130826
  2. GLUCOVANCE [Concomitant]
  3. FENTANYL [Concomitant]
  4. LOVENOX [Concomitant]
  5. PRAVASTATIN [Concomitant]
  6. HYDROCODONE-ACETAMINOPHEN [Concomitant]
  7. DOCUSATE SODIUM [Concomitant]

REACTIONS (3)
  - Syncope [None]
  - Haemolysis [None]
  - Metastases to central nervous system [None]
